FAERS Safety Report 7111680-4 (Version None)
Quarter: 2010Q4

REPORT INFORMATION
  Report Type: 
  Country: None (occurrence: None)
  Receive Date: 20101118
  Receipt Date: 20101111
  Transmission Date: 20110411
  Serious: Yes (Death, Other)
  Sender: FDA-Public Use
  Company Number: JP-RB-002628-10

PATIENT
  Sex: Male

DRUGS (1)
  1. LEPETAN INJECTION [Suspect]
     Indication: PAIN
     Route: 041

REACTIONS (2)
  - PNEUMONIA ASPIRATION [None]
  - SOMNOLENCE [None]
